FAERS Safety Report 12708136 (Version 1)
Quarter: 2016Q3

REPORT INFORMATION
  Report Type: Spontaneous
  Country: US (occurrence: US)
  Receive Date: 20160901
  Receipt Date: 20160901
  Transmission Date: 20161109
  Serious: No
  Sender: FDA-Public Use
  Company Number: US-PFIZER INC-2016406350

PATIENT
  Age: 56 Year
  Sex: Female
  Weight: 58 kg

DRUGS (7)
  1. BAYER ASPIRIN [Concomitant]
     Active Substance: ASPIRIN
     Indication: BLOOD DISORDER
     Dosage: 162 MG, DAILY (81 MG 2 TABLETS)
     Route: 048
  2. ARIMIDEX [Concomitant]
     Active Substance: ANASTROZOLE
     Indication: CANCER HORMONAL THERAPY
     Dosage: 1 MG, 1X/DAY
     Route: 048
     Dates: start: 20150218
  3. LIPITOR [Suspect]
     Active Substance: ATORVASTATIN CALCIUM
     Indication: BLOOD CHOLESTEROL INCREASED
     Dosage: 20 MG, DAILY (40 MG 1/2 TABLET)
     Route: 048
     Dates: start: 20160729, end: 20160823
  4. LIPITOR [Suspect]
     Active Substance: ATORVASTATIN CALCIUM
     Dosage: 40 MG, DAILY (WHOLE DOSE THE SECOND HALF THAT WEEK)
     Route: 048
  5. VITAMIN D /00107901/ [Concomitant]
     Active Substance: ERGOCALCIFEROL
     Indication: VITAMIN D DEFICIENCY
     Dosage: 10000 IU, DAILY (5000 IU TWO TABLETS)
     Route: 048
     Dates: start: 2014
  6. OMEGA 3 FISH OIL /01334101/ [Concomitant]
     Active Substance: FISH OIL
     Indication: BLOOD TRIGLYCERIDES
     Dosage: 2000 MG, DAILY (1000MG, TWO LIQUIGELS)
     Route: 048
     Dates: start: 2015
  7. VITAMIN D /00107901/ [Concomitant]
     Active Substance: ERGOCALCIFEROL
     Indication: SUPPLEMENTATION THERAPY

REACTIONS (6)
  - Confusional state [Unknown]
  - Vomiting [Recovering/Resolving]
  - Hyperhidrosis [Recovering/Resolving]
  - Diarrhoea [Not Recovered/Not Resolved]
  - Nausea [Recovering/Resolving]
  - Dizziness [Recovering/Resolving]

NARRATIVE: CASE EVENT DATE: 20160729
